FAERS Safety Report 17834793 (Version 1)
Quarter: 2020Q2

REPORT INFORMATION
  Report Type: Spontaneous
  Country: US (occurrence: US)
  Receive Date: 20200528
  Receipt Date: 20200528
  Transmission Date: 20200714
  Serious: Yes (Other)
  Sender: FDA-Public Use
  Company Number: None

PATIENT
  Age: 35 Year
  Sex: Female
  Weight: 88.2 kg

DRUGS (15)
  1. REYVOW [Concomitant]
     Active Substance: LASMIDITAN
  2. FLONASE [Concomitant]
     Active Substance: FLUTICASONE PROPIONATE
  3. SYMBICORT [Concomitant]
     Active Substance: BUDESONIDE\FORMOTEROL FUMARATE DIHYDRATE
  4. OMEPRAZOLE. [Concomitant]
     Active Substance: OMEPRAZOLE
  5. SPRIX [Concomitant]
     Active Substance: KETOROLAC TROMETHAMINE
  6. VITAMIN D3 [Concomitant]
     Active Substance: CHOLECALCIFEROL
  7. MIGRANAL/DHE [Concomitant]
  8. DIHYDROERGOTAMINE MESYLATE. [Suspect]
     Active Substance: DIHYDROERGOTAMINE MESYLATE
     Indication: MIGRAINE
     Route: 041
     Dates: start: 20200528, end: 20200528
  9. ZOFRAN [Concomitant]
     Active Substance: ONDANSETRON HYDROCHLORIDE
     Dates: start: 20200528, end: 20200528
  10. SOLU-MEDROL 125 MG IV [Concomitant]
     Dates: start: 20200528, end: 20200528
  11. TIZANIDINE. [Concomitant]
     Active Substance: TIZANIDINE
  12. LO LOESTRIN FE [Concomitant]
     Active Substance: ETHINYL ESTRADIOL\NORETHINDRONE ACETATE
  13. PROAIR HFA [Concomitant]
     Active Substance: ALBUTEROL SULFATE
  14. AIMOVIG [Concomitant]
     Active Substance: ERENUMAB-AOOE
  15. TORADOL 30MG IV [Concomitant]
     Dates: start: 20200528, end: 20200528

REACTIONS (6)
  - Flushing [None]
  - Chest discomfort [None]
  - Nausea [None]
  - Hypoaesthesia [None]
  - Dizziness [None]
  - Dysgeusia [None]

NARRATIVE: CASE EVENT DATE: 20200528
